FAERS Safety Report 15470940 (Version 2)
Quarter: 2018Q4

REPORT INFORMATION
  Report Type: Spontaneous
  Country: US (occurrence: US)
  Receive Date: 20181006
  Receipt Date: 20181119
  Transmission Date: 20190205
  Serious: Yes (Other)
  Sender: FDA-Public Use
  Company Number: PHEH2018US042049

PATIENT
  Age: 3 Year
  Sex: Female
  Weight: 18.6 kg

DRUGS (5)
  1. ORAPRED [Concomitant]
     Active Substance: PREDNISOLONE SODIUM PHOSPHATE
     Indication: PRODUCT USED FOR UNKNOWN INDICATION
     Dosage: 6 ML, QD
     Route: 048
     Dates: start: 20180925
  2. ILARIS [Suspect]
     Active Substance: CANAKINUMAB
     Dosage: 120 MG, QMO
     Route: 058
     Dates: start: 201711, end: 201807
  3. TOCILIZUMAB. [Concomitant]
     Active Substance: TOCILIZUMAB
     Indication: PRODUCT USED FOR UNKNOWN INDICATION
     Dosage: 200 MG, UNK
     Route: 042
     Dates: start: 201808, end: 201809
  4. HUMIRA [Concomitant]
     Active Substance: ADALIMUMAB
     Indication: PRODUCT USED FOR UNKNOWN INDICATION
     Dosage: 20 MG, UNK
     Route: 058
     Dates: start: 201809
  5. ILARIS [Suspect]
     Active Substance: CANAKINUMAB
     Indication: AUTOINFLAMMATORY DISEASE
     Dosage: 60 MG, QMO
     Route: 058
     Dates: start: 201707

REACTIONS (5)
  - Rash [Recovering/Resolving]
  - Vaginal abscess [Recovering/Resolving]
  - Genital ulceration [Recovering/Resolving]
  - Neck pain [None]
  - Pain in extremity [Unknown]

NARRATIVE: CASE EVENT DATE: 20180106
